FAERS Safety Report 4375567-2 (Version None)
Quarter: 2004Q2

REPORT INFORMATION
  Report Type: 
  Country: None (occurrence: None)
  Receive Date: 20040607
  Receipt Date: 20040524
  Transmission Date: 20050107
  Serious: Yes (Hospitalization, Other)
  Sender: FDA-Public Use
  Company Number: HQWYE108425MAY04

PATIENT
  Age: 36 Year
  Sex: Male
  Weight: 76.73 kg

DRUGS (6)
  1. RAPAMUNE [Suspect]
     Indication: PROPHYLAXIS AGAINST TRANSPLANT REJECTION
     Dosage: 3 MG 1X PER 1 DAY,  ORAL
     Route: 048
     Dates: start: 20040515
  2. PREDNISONE TAB [Suspect]
     Indication: PROPHYLAXIS AGAINST TRANSPLANT REJECTION
     Dosage: 60 MG 1X PER 1 DAY, ORAL
     Route: 048
  3. INSULIN [Concomitant]
  4. NPH INSULIN [Concomitant]
  5. AMLODIPINE [Concomitant]
  6. PROGRAF [Concomitant]

REACTIONS (3)
  - ABDOMINAL PAIN LOWER [None]
  - INFLAMMATION OF WOUND [None]
  - POST PROCEDURAL HAEMATOMA [None]
